FAERS Safety Report 5993787-8 (Version None)
Quarter: 2008Q4

REPORT INFORMATION
  Report Type: 
  Country: None (occurrence: None)
  Receive Date: 20081212
  Receipt Date: 20081202
  Transmission Date: 20090506
  Serious: Yes (Other)
  Sender: FDA-Public Use
  Company Number: FR-ELI_LILLY_AND_COMPANY-FR200802002404

PATIENT
  Sex: Female
  Weight: 59 kg

DRUGS (9)
  1. GEMZAR [Suspect]
     Indication: PANCREATIC CARCINOMA
     Dosage: 1000 MG/M2, (1580 MG/INFUSION)
     Route: 042
     Dates: start: 20071031, end: 20071212
  2. GEMZAR [Suspect]
     Dosage: 750 MG/M2, OTHER
     Route: 042
     Dates: start: 20071213, end: 20080130
  3. GEMZAR [Suspect]
     Dosage: 500 MG/M2, OTHER
     Route: 042
     Dates: start: 20080131, end: 20080101
  4. GEMZAR [Suspect]
     Dosage: 480 MG, OTHER
     Route: 042
     Dates: start: 20080520
  5. GEMZAR [Suspect]
     Dosage: 400 MG, OTHER
     Route: 042
     Dates: start: 20080527
  6. ORACILLIN [Concomitant]
     Indication: SPLENECTOMY
     Dosage: UNK, UNKNOWN
     Route: 048
  7. INIPOMP [Concomitant]
     Dosage: 20 MG, DAILY (1/D)
     Route: 048
  8. ATARAX [Concomitant]
     Dosage: 25 MG, DAILY (1/D)
     Route: 048
  9. ZOPHREN [Concomitant]
     Dosage: 8 MG, DAILY (1/D)
     Route: 042
     Dates: start: 20081031

REACTIONS (2)
  - CYTOLYTIC HEPATITIS [None]
  - MALIGNANT NEOPLASM PROGRESSION [None]
